FAERS Safety Report 7917121-9 (Version None)
Quarter: 2011Q4

REPORT INFORMATION
  Report Type: 
  Country: None (occurrence: None)
  Receive Date: 20111103
  Receipt Date: 20111031
  Transmission Date: 20120403
  Serious: Yes (Hospitalization)
  Sender: FDA-Public Use
  Company Number: 2011029918

PATIENT
  Age: 52 Year
  Sex: Male

DRUGS (7)
  1. PRIVIGEN [Suspect]
     Indication: SECONDARY IMMUNODEFICIENCY
     Dosage: 10 G QD INTRAVENOUS (NOT OTHERWISE SPECIFIED)
     Route: 042
     Dates: start: 20110725, end: 20110725
  2. PRIVIGEN [Suspect]
     Indication: CHRONIC LYMPHOCYTIC LEUKAEMIA
     Dosage: 10 G QD INTRAVENOUS (NOT OTHERWISE SPECIFIED)
     Route: 042
     Dates: start: 20110725, end: 20110725
  3. BENDAMUSTINE (BENDAMUSTINE) [Concomitant]
  4. CYCLOPHOSPHAMIDE [Concomitant]
  5. RITUXAN [Concomitant]
  6. FLUDARA [Concomitant]
  7. RITUXIMAB (RITUXIMAB) [Concomitant]

REACTIONS (1)
  - BRONCHITIS BACTERIAL [None]
